FAERS Safety Report 6788507-3 (Version None)
Quarter: 2010Q2

REPORT INFORMATION
  Report Type: 
  Country: None (occurrence: None)
  Receive Date: 20100623
  Receipt Date: 20080331
  Transmission Date: 20101027
  Serious: No
  Sender: FDA-Public Use
  Company Number: US-PFIZER INC-2008028447

PATIENT
  Sex: Male

DRUGS (7)
  1. XALATAN [Suspect]
     Indication: GLAUCOMA
     Dates: start: 19980101
  2. DRUG, UNSPECIFIED [Concomitant]
  3. NORVASC [Concomitant]
  4. AVAPRO [Concomitant]
  5. ZETIA [Concomitant]
  6. ACETYLSALICYLIC ACID [Concomitant]
  7. OMEPRAZOLE [Concomitant]

REACTIONS (1)
  - BLOOD CREATINE PHOSPHOKINASE INCREASED [None]
